FAERS Safety Report 17491189 (Version 2)
Quarter: 2020Q2

REPORT INFORMATION
  Report Type: Report from Study
  Country: US (occurrence: US)
  Receive Date: 20200303
  Receipt Date: 20200424
  Transmission Date: 20200713
  Serious: No
  Sender: FDA-Public Use
  Company Number: US-SA-2020SA052243

PATIENT
  Age: 61 Year
  Sex: Male

DRUGS (10)
  1. DUPILUMAB [Suspect]
     Active Substance: DUPILUMAB
     Indication: HYPERLIPIDAEMIA
     Dosage: 300 MG, QOW
     Route: 058
     Dates: start: 20190801
  2. DUPILUMAB [Suspect]
     Active Substance: DUPILUMAB
     Indication: DERMATITIS ATOPIC
  3. OMEGA 3 FISH OIL + VITAMIN D [Concomitant]
  4. L-METHYLFOLATE [Concomitant]
     Active Substance: LEVOMEFOLIC ACID
  5. DUPILUMAB [Suspect]
     Active Substance: DUPILUMAB
     Indication: OPEN ANGLE GLAUCOMA
     Dosage: 300 MG, QOW
     Route: 058
  6. NEXIUM I.V. [Concomitant]
     Active Substance: ESOMEPRAZOLE SODIUM
  7. DUPILUMAB [Suspect]
     Active Substance: DUPILUMAB
     Indication: BIPOLAR DISORDER
     Dosage: 600 MG
     Route: 058
     Dates: start: 20200103
  8. LOSARTAN AND HYDROCHLOROTHIAZIDE [Concomitant]
     Active Substance: HYDROCHLOROTHIAZIDE\LOSARTAN POTASSIUM
  9. DEPAKOTE ER [Concomitant]
     Active Substance: DIVALPROEX SODIUM
  10. HALOBETASOL PROPIONATE. [Concomitant]
     Active Substance: HALOBETASOL PROPIONATE

REACTIONS (8)
  - Blister [Unknown]
  - Skin exfoliation [Unknown]
  - Eczema [Unknown]
  - Therapeutic response decreased [Unknown]
  - Pruritus [Unknown]
  - Skin fissures [Unknown]
  - Dry skin [Unknown]
  - Product use in unapproved indication [Unknown]

NARRATIVE: CASE EVENT DATE: 202002
